FAERS Safety Report 5688703-2 (Version None)
Quarter: 2008Q1

REPORT INFORMATION
  Report Type: 
  Country: None (occurrence: None)
  Receive Date: 20080331
  Receipt Date: 20080314
  Transmission Date: 20080703
  Serious: Yes (Death, Life-Threatening)
  Sender: FDA-Public Use
  Company Number: JP-MERCK-0803USA01961

PATIENT
  Age: 54 Year
  Sex: Female

DRUGS (3)
  1. PRIMAXIN [Suspect]
     Indication: PNEUMONIA
     Route: 041
     Dates: start: 20071114, end: 20071120
  2. PRIMAXIN [Suspect]
     Indication: SEPSIS
     Route: 041
     Dates: start: 20071114, end: 20071120
  3. UNASYN [Concomitant]
     Indication: PNEUMONIA
     Route: 042
     Dates: start: 20071112, end: 20071114

REACTIONS (2)
  - BONE MARROW FAILURE [None]
  - SEPSIS [None]
